FAERS Safety Report 7088928-8 (Version None)
Quarter: 2010Q4

REPORT INFORMATION
  Report Type: 
  Country: None (occurrence: None)
  Receive Date: 20101108
  Receipt Date: 20101028
  Transmission Date: 20110411
  Serious: Yes (Hospitalization)
  Sender: FDA-Public Use
  Company Number: PHHY2010US73182

PATIENT
  Sex: Female

DRUGS (11)
  1. SANDOSTATIN LAR [Suspect]
  2. AMLODIPINE [Concomitant]
     Dosage: 10 MG
  3. CARBIDOPA [Concomitant]
  4. LEVODOPA [Concomitant]
  5. CARVEDILOL [Concomitant]
  6. CITALOPRAM HYDROBROMIDE [Concomitant]
  7. GLIPIZIDE [Concomitant]
     Dosage: 10 MG, QD
  8. LEVOTHYROXINE [Concomitant]
     Dosage: 15 MG, QD
  9. LISINOPRIL [Concomitant]
  10. HYDROCHLOROTHIAZIDE [Concomitant]
  11. LOVASTATIN [Concomitant]
     Dosage: 40 MG

REACTIONS (1)
  - HEPATIC NEOPLASM MALIGNANT [None]
